FAERS Safety Report 11125638 (Version 1)
Quarter: 2015Q2

REPORT INFORMATION
  Report Type: Spontaneous
  Country: JP (occurrence: JP)
  Receive Date: 20150520
  Receipt Date: 20150520
  Transmission Date: 20150821
  Serious: Yes (Hospitalization)
  Sender: FDA-Public Use
  Company Number: JP-EISAI MEDICAL RESEARCH-EC-2015-006832

PATIENT
  Age: 84 Year
  Sex: Male

DRUGS (2)
  1. RABECURE [Suspect]
     Active Substance: RABEPRAZOLE SODIUM
     Indication: HELICOBACTER INFECTION
     Route: 048
     Dates: start: 20150424, end: 20150427
  2. NIFELANTERN CR [Interacting]
     Active Substance: NIFEDIPINE
     Indication: HYPERTENSION
     Dosage: TOTAL DOSE UNKNOWN
     Route: 048
     Dates: end: 20150427

REACTIONS (2)
  - Hypotension [Recovered/Resolved]
  - Drug interaction [Recovered/Resolved]

NARRATIVE: CASE EVENT DATE: 20150427
